FAERS Safety Report 13080751 (Version 4)
Quarter: 2017Q2

REPORT INFORMATION
  Report Type: Spontaneous
  Country: JP (occurrence: JP)
  Receive Date: 20170103
  Receipt Date: 20170505
  Transmission Date: 20170830
  Serious: Yes (Hospitalization, Other)
  Sender: FDA-Public Use
  Company Number: JP-JNJFOC-20161224167

PATIENT
  Age: 86 Year
  Sex: Male

DRUGS (18)
  1. SEPAZON [Concomitant]
     Active Substance: CLOXAZOLAM
     Route: 048
  2. SEROQUEL [Concomitant]
     Active Substance: QUETIAPINE FUMARATE
     Route: 048
  3. RISPERDAL [Suspect]
     Active Substance: RISPERIDONE
     Indication: RESTLESSNESS
     Dosage: UPTO 4 DOSES A DAY
     Route: 048
     Dates: start: 2016, end: 2016
  4. DEPAS [Concomitant]
     Active Substance: ETIZOLAM
     Indication: DELIRIUM
     Route: 048
  5. RISPERDAL [Suspect]
     Active Substance: RISPERIDONE
     Indication: DELIRIUM
     Route: 048
     Dates: start: 2016, end: 2016
  6. RISPERDAL [Suspect]
     Active Substance: RISPERIDONE
     Indication: DELIRIUM
     Dosage: UPTO 4 DOSES A DAY
     Route: 048
     Dates: start: 2016, end: 2016
  7. JZOLOFT [Concomitant]
     Active Substance: SERTRALINE HYDROCHLORIDE
     Route: 048
  8. BELSOMRA [Concomitant]
     Active Substance: SUVOREXANT
     Route: 048
  9. RISPERDAL [Suspect]
     Active Substance: RISPERIDONE
     Indication: RESTLESSNESS
     Route: 048
     Dates: start: 20161026, end: 20161122
  10. LUPRAC [Concomitant]
     Active Substance: TORSEMIDE
     Route: 048
     Dates: end: 20161213
  11. LUNESTA [Concomitant]
     Active Substance: ESZOPICLONE
     Route: 048
  12. RISPERDAL [Suspect]
     Active Substance: RISPERIDONE
     Indication: RESTLESSNESS
     Route: 048
     Dates: start: 2016, end: 2016
  13. RISPERDAL [Suspect]
     Active Substance: RISPERIDONE
     Indication: DELIRIUM
     Route: 048
     Dates: start: 2016, end: 20161122
  14. TRAZODONE [Concomitant]
     Active Substance: TRAZODONE HYDROCHLORIDE
     Indication: DELIRIUM
     Route: 048
  15. RISPERDAL [Suspect]
     Active Substance: RISPERIDONE
     Indication: RESTLESSNESS
     Route: 048
     Dates: start: 2016, end: 20161122
  16. RISPERDAL [Suspect]
     Active Substance: RISPERIDONE
     Indication: DELIRIUM
     Route: 048
     Dates: start: 20161026, end: 20161122
  17. YOKUKANSAN [Concomitant]
     Active Substance: HERBALS
     Route: 048
  18. WYPAX [Concomitant]
     Active Substance: LORAZEPAM
     Route: 048

REACTIONS (12)
  - Hormone level abnormal [Not Recovered/Not Resolved]
  - Inappropriate schedule of drug administration [Unknown]
  - Hypokalaemia [Not Recovered/Not Resolved]
  - Depressed level of consciousness [Unknown]
  - Haemoptysis [Unknown]
  - Depressive symptom [Unknown]
  - Restlessness [Unknown]
  - Off label use [Unknown]
  - Blood pressure decreased [Unknown]
  - Hyponatraemia [Recovered/Resolved]
  - Dyspnoea [Unknown]
  - Drug ineffective for unapproved indication [Unknown]

NARRATIVE: CASE EVENT DATE: 2016
